FAERS Safety Report 13030791 (Version 1)
Quarter: 2016Q4

REPORT INFORMATION
  Report Type: Spontaneous
  Country: US (occurrence: US)
  Receive Date: 20161215
  Receipt Date: 20161215
  Transmission Date: 20170207
  Serious: No
  Sender: FDA-Public Use
  Company Number: US-BAUSCH-BL-2016-006190

PATIENT
  Age: 70 Year
  Sex: Female

DRUGS (2)
  1. DORZOLAMIDE AND TIMOLOL OPHTHALMIC SOLUTION [Concomitant]
     Indication: GLAUCOMA
     Route: 061
  2. APRISO [Suspect]
     Active Substance: MESALAMINE
     Indication: COLITIS ULCERATIVE
     Route: 048
     Dates: start: 201512

REACTIONS (1)
  - Alopecia [Not Recovered/Not Resolved]

NARRATIVE: CASE EVENT DATE: 2016
